FAERS Safety Report 6232488-8 (Version None)
Quarter: 2009Q2

REPORT INFORMATION
  Report Type: 
  Country: None (occurrence: None)
  Receive Date: 20090615
  Receipt Date: 20090615
  Transmission Date: 20091009
  Serious: Yes (Other)
  Sender: FDA-Public Use
  Company Number: None

PATIENT
  Age: 85 Year
  Sex: Female
  Weight: 55.3388 kg

DRUGS (1)
  1. CIPRO [Suspect]
     Indication: EAR INFECTION
     Dates: start: 20070401

REACTIONS (3)
  - ACTIVITIES OF DAILY LIVING IMPAIRED [None]
  - MUSCLE INJURY [None]
  - PAIN [None]
